FAERS Safety Report 4902015-3 (Version None)
Quarter: 2006Q1

REPORT INFORMATION
  Report Type: 
  Country: None (occurrence: None)
  Receive Date: 20060202
  Receipt Date: 20060118
  Transmission Date: 20060701
  Serious: Yes (Hospitalization, Other)
  Sender: FDA-Public Use
  Company Number: 2004S1002707

PATIENT
  Age: 76 Year
  Sex: Male
  Weight: 58.9676 kg

DRUGS (12)
  1. APOKYN [Suspect]
     Indication: PARKINSON'S DISEASE
     Dosage: 2 MG; X1; SC
     Route: 058
     Dates: start: 20040909, end: 20040909
  2. CARBIDOPA AND LEVODOPA [Concomitant]
  3. ROPINIROLE HYDROCHLORIDE [Concomitant]
  4. .................. [Concomitant]
  5. ENTACAPONE [Concomitant]
  6. VITAMIN E [Concomitant]
  7. ASCORBIC ACID [Concomitant]
  8. FOLIC ACID [Concomitant]
  9. VITAMINS [Concomitant]
  10. STOOL SOFTENER [Concomitant]
  11. CLONAZEPAM [Concomitant]
  12. IBUPROFEN [Concomitant]

REACTIONS (8)
  - ASTHENIA [None]
  - CARDIAC DISORDER [None]
  - CHEST PAIN [None]
  - CHEST X-RAY ABNORMAL [None]
  - DRUG EFFECT DECREASED [None]
  - DYSPNOEA [None]
  - INSOMNIA [None]
  - PNEUMONIA [None]
